FAERS Safety Report 5555907-9 (Version None)
Quarter: 2007Q4

REPORT INFORMATION
  Report Type: 
  Country: None (occurrence: None)
  Receive Date: 20071213
  Receipt Date: 20071119
  Transmission Date: 20080405
  Serious: No
  Sender: FDA-Public Use
  Company Number: US-BOEHRINGER INGELHEIM PHARMACEUTICALS, INC.-2007-BP-24892BP

PATIENT
  Age: 83 Year
  Sex: Male

DRUGS (6)
  1. FLOMAX [Suspect]
     Indication: BENIGN PROSTATIC HYPERPLASIA
     Route: 048
     Dates: start: 20070515
  2. FLOMAX [Suspect]
     Indication: POLLAKIURIA
  3. LISINOPRIL [Concomitant]
  4. NAPROXEN [Concomitant]
  5. ACIPHEX [Concomitant]
  6. M.V.I. [Concomitant]

REACTIONS (3)
  - DECREASED APPETITE [None]
  - FLATULENCE [None]
  - WEIGHT DECREASED [None]
